FAERS Safety Report 8482831-4 (Version None)
Quarter: 2012Q3

REPORT INFORMATION
  Report Type: 
  Country: None (occurrence: None)
  Receive Date: 20120702
  Receipt Date: 20120622
  Transmission Date: 20120928
  Serious: Yes (Other)
  Sender: FDA-Public Use
  Company Number: US-ASTRAZENECA-2010SE21692

PATIENT
  Age: 52 Year
  Sex: Female

DRUGS (2)
  1. SEROQUEL XR [Suspect]
     Route: 048
  2. SEROQUEL XR [Suspect]
     Route: 048

REACTIONS (10)
  - COGNITIVE DISORDER [None]
  - INTENTIONAL DRUG MISUSE [None]
  - INSOMNIA [None]
  - SUICIDAL IDEATION [None]
  - MEMORY IMPAIRMENT [None]
  - EMOTIONAL DISORDER [None]
  - MALAISE [None]
  - CRYING [None]
  - DRUG DOSE OMISSION [None]
  - MANIA [None]
